FAERS Safety Report 23181582 (Version 2)
Quarter: 2023Q4

REPORT INFORMATION
  Report Type: Report from Study
  Country: TW (occurrence: TW)
  Receive Date: 20231114
  Receipt Date: 20231218
  Transmission Date: 20240109
  Serious: Yes (Death)
  Sender: FDA-Public Use
  Company Number: TW-Merck Healthcare KGaA-2023487183

PATIENT
  Sex: Male
  Weight: 65 kg

DRUGS (3)
  1. TEPOTINIB [Suspect]
     Active Substance: TEPOTINIB
     Indication: Lung neoplasm malignant
     Dates: start: 20220120, end: 20220331
  2. SEROQUEL [Concomitant]
     Active Substance: QUETIAPINE FUMARATE
     Indication: Insomnia
     Dosage: HS (IN THE EVENING)
     Route: 048
     Dates: start: 20211216, end: 20220303
  3. PROCATEROL HYDROCHLORIDE [Concomitant]
     Active Substance: PROCATEROL HYDROCHLORIDE
     Indication: Dyspnoea
     Route: 048
     Dates: start: 20211230, end: 20220331

REACTIONS (2)
  - Death [Fatal]
  - Hospice care [Unknown]

NARRATIVE: CASE EVENT DATE: 20220401
